FAERS Safety Report 5639809-5 (Version None)
Quarter: 2008Q1

REPORT INFORMATION
  Report Type: 
  Country: None (occurrence: None)
  Receive Date: 20080226
  Receipt Date: 20080226
  Transmission Date: 20080703
  Serious: No
  Sender: FDA-Public Use
  Company Number: None

PATIENT
  Sex: Male
  Weight: 88.4 kg

DRUGS (1)
  1. SYNTHROID [Suspect]

REACTIONS (3)
  - DRUG EFFECT DECREASED [None]
  - DRUG LEVEL CHANGED [None]
  - PHARMACEUTICAL PRODUCT COMPLAINT [None]
